FAERS Safety Report 14351011 (Version 1)
Quarter: 2018Q1

REPORT INFORMATION
  Report Type: Spontaneous
  Country: US (occurrence: US)
  Receive Date: 20180104
  Receipt Date: 20180104
  Transmission Date: 20180509
  Serious: Yes (Other)
  Sender: FDA-Public Use
  Company Number: US-BAYER-2017-251697

PATIENT
  Age: 27 Year
  Sex: Female

DRUGS (1)
  1. KYLEENA [Suspect]
     Active Substance: LEVONORGESTREL
     Indication: CONTRACEPTION
     Dosage: 17.5 MCG/24HR, CONT
     Route: 015
     Dates: start: 20171114, end: 20171120

REACTIONS (4)
  - Pregnancy with contraceptive device [None]
  - Abortion spontaneous [None]
  - Medical device monitoring error [None]
  - Contraindicated device used [None]

NARRATIVE: CASE EVENT DATE: 20171120
